FAERS Safety Report 24670580 (Version 3)
Quarter: 2025Q1

REPORT INFORMATION
  Report Type: Report from Study
  Country: US (occurrence: US)
  Receive Date: 20241127
  Receipt Date: 20250220
  Transmission Date: 20250409
  Serious: No
  Sender: SUNOVION
  Company Number: US-SUMITOMO PHARMA SWITZERLAND GMBH-2024SPA005437

PATIENT

DRUGS (3)
  1. ORGOVYX [Suspect]
     Active Substance: RELUGOLIX
     Indication: Prostate cancer
     Dosage: 240 MG, SINGLE
     Route: 048
  2. ORGOVYX [Suspect]
     Active Substance: RELUGOLIX
     Route: 048
  3. ORGOVYX [Suspect]
     Active Substance: RELUGOLIX
     Dosage: 120 MG, QD
     Route: 048
     Dates: start: 20241115

REACTIONS (13)
  - Increased appetite [Unknown]
  - Peripheral coldness [Unknown]
  - Weight decreased [Unknown]
  - Inflammation [Unknown]
  - Muscle atrophy [Unknown]
  - Weight loss poor [Unknown]
  - Asthenia [Unknown]
  - Weight increased [Recovering/Resolving]
  - Pain in extremity [Unknown]
  - Hot flush [Unknown]
  - Fatigue [Unknown]
  - Product dose omission in error [Unknown]
  - Incorrect dose administered [Unknown]
